FAERS Safety Report 16019419 (Version 1)
Quarter: 2019Q1

REPORT INFORMATION
  Report Type: Spontaneous
  Country: US (occurrence: US)
  Receive Date: 20190228
  Receipt Date: 20190228
  Transmission Date: 20190418
  Serious: No
  Sender: FDA-Public Use
  Company Number: US-TEVA-732478USA

PATIENT
  Age: 66 Year

DRUGS (12)
  1. DOBUTAMINE HCL [Suspect]
     Active Substance: DOBUTAMINE HYDROCHLORIDE
     Route: 065
  2. CRESTOR [Suspect]
     Active Substance: ROSUVASTATIN CALCIUM
     Route: 065
  3. TIKOSYN [Suspect]
     Active Substance: DOFETILIDE
     Route: 065
  4. MULTAQ [Suspect]
     Active Substance: DRONEDARONE
     Route: 065
  5. LISINOPRIL. [Suspect]
     Active Substance: LISINOPRIL
     Route: 065
  6. ELAVIL [Suspect]
     Active Substance: AMITRIPTYLINE HYDROCHLORIDE
     Route: 065
  7. SIMVASTATIN. [Suspect]
     Active Substance: SIMVASTATIN
     Route: 065
  8. ATRICAN (TENONITROZOLE) [Suspect]
     Active Substance: TENONITROZOLE
     Route: 065
  9. PROAIR HFA [Suspect]
     Active Substance: ALBUTEROL SULFATE
     Route: 065
  10. AMISULPRIDE [Suspect]
     Active Substance: AMISULPRIDE
     Route: 065
  11. ATORVASTATIN CALCIUM. [Suspect]
     Active Substance: ATORVASTATIN CALCIUM
     Route: 065
  12. MELOXICAM. [Suspect]
     Active Substance: MELOXICAM
     Route: 065

REACTIONS (2)
  - Drug hypersensitivity [Unknown]
  - Chest pain [Unknown]
